FAERS Safety Report 5993069-4 (Version None)
Quarter: 2008Q4

REPORT INFORMATION
  Report Type: 
  Country: None (occurrence: None)
  Receive Date: 20081210
  Receipt Date: 20081210
  Transmission Date: 20090506
  Serious: Yes (Hospitalization)
  Sender: FDA-Public Use
  Company Number: None

PATIENT
  Sex: Female
  Weight: 37.6 kg

DRUGS (1)
  1. ERLOTINIB [Suspect]
     Indication: NON-SMALL CELL LUNG CANCER
     Dosage: 150 MG QD PO
     Route: 048
     Dates: start: 20081101, end: 20081130

REACTIONS (4)
  - CHEST PAIN [None]
  - DISEASE PROGRESSION [None]
  - LYMPHADENOPATHY [None]
  - MEDIASTINAL DISORDER [None]
